FAERS Safety Report 12886498 (Version 1)
Quarter: 2016Q4

REPORT INFORMATION
  Report Type: Report from Study
  Country: US (occurrence: US)
  Receive Date: 20161026
  Receipt Date: 20161026
  Transmission Date: 20170207
  Serious: Yes (Other)
  Sender: FDA-Public Use
  Company Number: US-ARIAD PHARMACEUTICALS, INC-2016US006486

PATIENT
  Sex: Male

DRUGS (5)
  1. ICLUSIG [Suspect]
     Active Substance: PONATINIB
     Dosage: 30 MG, QD
     Route: 048
  2. ICLUSIG [Suspect]
     Active Substance: PONATINIB
     Indication: CHRONIC MYELOID LEUKAEMIA RECURRENT
     Dosage: 30 MG, QD
     Route: 048
     Dates: start: 20160414
  3. ICLUSIG [Suspect]
     Active Substance: PONATINIB
     Dosage: 30 MG, QD
     Route: 048
  4. ICLUSIG [Suspect]
     Active Substance: PONATINIB
     Dosage: 30 MG, QD
     Route: 048
  5. IMDUR [Concomitant]
     Active Substance: ISOSORBIDE MONONITRATE
     Indication: HYPERTENSION
     Dosage: UNK

REACTIONS (19)
  - Decreased activity [Not Recovered/Not Resolved]
  - Weight increased [Unknown]
  - Oedema peripheral [Unknown]
  - Blood pressure increased [Unknown]
  - Pain in extremity [Unknown]
  - Rash [Unknown]
  - Myalgia [Unknown]
  - Nausea [Not Recovered/Not Resolved]
  - Dysgeusia [Unknown]
  - Hypertension [Not Recovered/Not Resolved]
  - Neck pain [Unknown]
  - Arthralgia [Unknown]
  - Fatigue [Not Recovered/Not Resolved]
  - Asthenia [Unknown]
  - Malaise [Not Recovered/Not Resolved]
  - Gynaecomastia [Unknown]
  - Food aversion [Unknown]
  - Hypophagia [Unknown]
  - Headache [Not Recovered/Not Resolved]
